FAERS Safety Report 9998946 (Version 3)
Quarter: 2014Q2

REPORT INFORMATION
  Report Type: Report from Study
  Country: AT (occurrence: AT)
  Receive Date: 20140312
  Receipt Date: 20140414
  Transmission Date: 20141212
  Serious: Yes (Hospitalization)
  Sender: FDA-Public Use
  Company Number: AT-ALEXION PHARMACEUTICALS INC.-A201400689

PATIENT
  Sex: 0

DRUGS (4)
  1. ECULIZUMAB [Suspect]
     Indication: HAEMOLYTIC URAEMIC SYNDROME
     Dosage: UNK
     Route: 042
     Dates: start: 20131114
  2. ECULIZUMAB [Suspect]
     Dosage: 600 MG, UNK
     Route: 042
     Dates: start: 20140113, end: 20140113
  3. ECULIZUMAB [Suspect]
     Dosage: 900 MG, UNK
     Route: 042
     Dates: start: 20140123, end: 20140123
  4. ECULIZUMAB [Suspect]
     Dosage: 900 MG, UNK
     Route: 042
     Dates: start: 20140130, end: 20140130

REACTIONS (1)
  - Disease recurrence [Recovered/Resolved with Sequelae]
